FAERS Safety Report 6027345-6 (Version None)
Quarter: 2009Q1

REPORT INFORMATION
  Report Type: 
  Country: None (occurrence: None)
  Receive Date: 20090105
  Receipt Date: 20081222
  Transmission Date: 20090719
  Serious: Yes (Other)
  Sender: FDA-Public Use
  Company Number: B0551325A

PATIENT
  Sex: Male

DRUGS (7)
  1. RETROVIR [Suspect]
     Route: 048
  2. EPIVIR [Suspect]
     Route: 048
  3. ZIAGEN [Suspect]
     Route: 048
  4. ISONIAZID [Concomitant]
     Indication: TUBERCULOSIS
  5. RIFAMPICIN [Concomitant]
     Indication: TUBERCULOSIS
  6. ETHAMBUTOL [Concomitant]
     Indication: TUBERCULOSIS
  7. LEVOFLOXACIN [Concomitant]
     Indication: TUBERCULOSIS

REACTIONS (4)
  - IMMUNE RECONSTITUTION SYNDROME [None]
  - LYMPHADENOPATHY [None]
  - PYREXIA [None]
  - TUBERCULOSIS [None]
